FAERS Safety Report 7706831-4 (Version None)
Quarter: 2011Q3

REPORT INFORMATION
  Report Type: 
  Country: None (occurrence: None)
  Receive Date: 20110818
  Receipt Date: 20110815
  Transmission Date: 20111222
  Serious: Yes (Hospitalization)
  Sender: FDA-Public Use
  Company Number: 2011SP024329

PATIENT
  Age: 58 Year
  Sex: Male

DRUGS (1)
  1. INTRON A [Suspect]
     Indication: HEPATITIS C
     Dosage: 10 MIU;QD;IM
     Route: 030

REACTIONS (8)
  - HEADACHE [None]
  - DEPRESSED MOOD [None]
  - DEMENTIA ALZHEIMER'S TYPE [None]
  - PYREXIA [None]
  - SUICIDE ATTEMPT [None]
  - PARANOIA [None]
  - PNEUMONIA ASPIRATION [None]
  - INCONTINENCE [None]
